FAERS Safety Report 9444898 (Version 2)
Quarter: 2013Q3

REPORT INFORMATION
  Report Type: Spontaneous
  Country: US (occurrence: US)
  Receive Date: 20130807
  Receipt Date: 20130915
  Transmission Date: 20140515
  Serious: No
  Sender: FDA-Public Use
  Company Number: US-009507513-1308USA002684

PATIENT
  Sex: Female
  Weight: 68.27 kg

DRUGS (1)
  1. MIRALAX [Suspect]
     Indication: CONSTIPATION
     Dosage: 17 G, QD
     Route: 048
     Dates: start: 2013

REACTIONS (3)
  - Gastrointestinal motility disorder [Unknown]
  - Drug ineffective [Unknown]
  - Flatulence [Unknown]
